FAERS Safety Report 8328111-9 (Version None)
Quarter: 2012Q2

REPORT INFORMATION
  Report Type: 
  Country: None (occurrence: None)
  Receive Date: 20120502
  Receipt Date: 20120423
  Transmission Date: 20120825
  Serious: Yes (Hospitalization, Other)
  Sender: FDA-Public Use
  Company Number: US-BAYER-2012-000484

PATIENT
  Age: 73 Year
  Sex: Male

DRUGS (11)
  1. NEXAVAR [Suspect]
     Dosage: 400 MG, BID
  2. ANTITHROMBOTIC AGENTS [Concomitant]
     Dosage: UNK
     Route: 048
  3. COUMADIN [Concomitant]
     Dosage: UNK
     Route: 048
     Dates: end: 20120222
  4. NEXAVAR [Suspect]
     Dosage: 400 MG, BID
     Route: 048
     Dates: start: 20111219, end: 20120401
  5. NEXAVAR [Suspect]
     Indication: HEPATIC NEOPLASM MALIGNANT
     Dosage: 1 AM AND 1 PM
     Route: 048
     Dates: start: 20111223, end: 20120103
  6. HYDROCODONE BITARTRATE [Concomitant]
     Indication: PAIN
     Route: 048
  7. ANXIOLYTICS [Concomitant]
     Indication: ANXIETY
     Dosage: UNK
  8. NEURONTIN [Concomitant]
     Dosage: UNK
     Route: 048
  9. NEXAVAR [Suspect]
     Dosage: 1 AM AND 1 PM
     Dates: start: 20120124
  10. ANTI-DIABETICS [Concomitant]
     Indication: DIABETES MELLITUS
     Dosage: UNK
     Route: 048
  11. MORPHINE [Concomitant]
     Indication: PAIN
     Dosage: UNK
     Route: 048

REACTIONS (22)
  - HEADACHE [None]
  - ABASIA [None]
  - BLOOD PRESSURE ABNORMAL [None]
  - RASH GENERALISED [None]
  - CYSTITIS [None]
  - FALL [None]
  - HYPERSOMNIA [None]
  - NECK PAIN [None]
  - CHEST DISCOMFORT [None]
  - OEDEMA PERIPHERAL [None]
  - COAGULOPATHY [None]
  - DYSPNOEA [None]
  - MOBILITY DECREASED [None]
  - COUGH [None]
  - PNEUMONIA [None]
  - HYPOTENSION [None]
  - RADIATION INJURY [None]
  - PALMAR-PLANTAR ERYTHRODYSAESTHESIA SYNDROME [None]
  - MUSCULAR WEAKNESS [None]
  - PAIN [None]
  - MEMORY IMPAIRMENT [None]
  - ASTHENIA [None]
